FAERS Safety Report 10453059 (Version 2)
Quarter: 2014Q3

REPORT INFORMATION
  Report Type: Report from Study
  Country: US (occurrence: US)
  Receive Date: 20140915
  Receipt Date: 20140918
  Transmission Date: 20150326
  Serious: Yes (Other)
  Sender: FDA-Public Use
  Company Number: US-PFIZER INC-2014245085

PATIENT
  Age: 59 Year
  Sex: Male
  Weight: 86.17 kg

DRUGS (1)
  1. CRIZOTINIB [Suspect]
     Active Substance: CRIZOTINIB
     Indication: NON-SMALL CELL LUNG CANCER
     Dosage: 200 MG, 1X/DAY
     Dates: start: 20130201, end: 20131001

REACTIONS (9)
  - Vomiting [Unknown]
  - Upper respiratory tract infection [Unknown]
  - Arthralgia [Unknown]
  - Nausea [Unknown]
  - Constipation [Unknown]
  - Chest pain [Unknown]
  - Fatigue [Unknown]
  - Headache [Unknown]
  - Pyrexia [Unknown]
